FAERS Safety Report 9225533 (Version 3)
Quarter: 2013Q2

REPORT INFORMATION
  Report Type: Spontaneous
  Country: HU (occurrence: HU)
  Receive Date: 20130411
  Receipt Date: 20130423
  Transmission Date: 20140414
  Serious: Yes (Hospitalization)
  Sender: FDA-Public Use
  Company Number: HU-ROCHE-1212683

PATIENT
  Age: 55 Year
  Sex: Female
  Weight: 60 kg

DRUGS (13)
  1. AVASTIN [Suspect]
     Indication: NON-SMALL CELL LUNG CANCER
     Route: 042
     Dates: start: 20130318, end: 20130318
  2. PACLITAXEL [Suspect]
     Indication: NON-SMALL CELL LUNG CANCER
     Route: 042
     Dates: start: 20130318, end: 20130318
  3. CARBOPLATIN [Suspect]
     Indication: NON-SMALL CELL LUNG CANCER
     Route: 042
     Dates: start: 20130318, end: 20130318
  4. EMETRON [Concomitant]
     Route: 048
     Dates: start: 20130318
  5. FUROSEMIDE [Concomitant]
     Indication: HYPERTENSION
     Route: 048
     Dates: start: 20130219
  6. KALDYUM [Concomitant]
     Indication: HYPERTENSION
     Route: 048
     Dates: start: 20130219
  7. QUAMATEL [Concomitant]
     Indication: GASTRITIS
     Route: 048
     Dates: start: 20130219
  8. CONCOR [Concomitant]
     Indication: HYPERTENSION
     Route: 048
     Dates: start: 20130219
  9. XETER [Concomitant]
     Indication: HYPERLIPIDAEMIA
     Route: 048
     Dates: start: 20130219
  10. ASPIRIN PROTECT [Concomitant]
     Indication: HYPERTENSION
     Dosage: LAST DOSE ADMINISTERED PRIOR TO EVENT 01/APR/
     Route: 048
     Dates: start: 20130219
  11. COVEREX-AS [Concomitant]
     Indication: HYPERTENSION
     Route: 048
     Dates: start: 20130219
  12. NEO-FERRO FOLGAMMA [Concomitant]
     Indication: ANAEMIA
     Dosage: 114/0.8 MG
     Route: 048
     Dates: start: 20130226
  13. SPIRIVA [Concomitant]
     Indication: CHRONIC OBSTRUCTIVE PULMONARY DISEASE
     Dosage: 0.018-0.0225 MG
     Route: 050
     Dates: start: 20130326

REACTIONS (1)
  - Cerebrovascular accident [Recovered/Resolved]
